FAERS Safety Report 17863999 (Version 2)
Quarter: 2020Q3

REPORT INFORMATION
  Report Type: Spontaneous
  Country: GB (occurrence: GB)
  Receive Date: 20200605
  Receipt Date: 20200701
  Transmission Date: 20201103
  Serious: Yes (Death)
  Sender: FDA-Public Use
  Company Number: GB-ROCHE-2615720

PATIENT
  Sex: Male
  Weight: 67.8 kg

DRUGS (2)
  1. PERJETA [Suspect]
     Active Substance: PERTUZUMAB
     Indication: ADENOCARCINOMA OF COLON
     Route: 042
     Dates: start: 20200121, end: 20200221
  2. HERCEPTIN [Suspect]
     Active Substance: TRASTUZUMAB
     Indication: ADENOCARCINOMA OF COLON
     Dosage: LOADING DOSE OF 735MG, FOLLOWED BY MAINTENANCE DOSE OF 504MG, WHICH I^VE CALCULATED AS 17 X 150MG VI
     Route: 042
     Dates: start: 20200121, end: 20200221

REACTIONS (2)
  - Febrile neutropenia [Fatal]
  - Neutropenia [Fatal]

NARRATIVE: CASE EVENT DATE: 20200229
